FAERS Safety Report 6722584-0 (Version None)
Quarter: 2010Q2

REPORT INFORMATION
  Report Type: 
  Country: None (occurrence: None)
  Receive Date: 20100512
  Receipt Date: 20100504
  Transmission Date: 20101027
  Serious: Yes (Other)
  Sender: FDA-Public Use
  Company Number: US-PFIZER INC-2010043829

PATIENT
  Sex: Female
  Weight: 78.017 kg

DRUGS (15)
  1. REVATIO [Suspect]
     Indication: PULMONARY HYPERTENSION
     Dosage: 20 MG, 3X/DAY
     Route: 048
     Dates: start: 20080101
  2. REVATIO [Suspect]
     Dosage: 40 MG, 3X/DAY
  3. REVLIMID [Concomitant]
     Indication: MULTIPLE MYELOMA
     Dosage: UNK
  4. DEXAMETHASONE [Concomitant]
     Indication: MULTIPLE MYELOMA
     Dosage: 10 MG, UNK
  5. AZULFIDINE [Concomitant]
     Dosage: UNK
  6. ZOFRAN [Concomitant]
     Dosage: UNK
  7. DETROL [Concomitant]
     Dosage: UNK
  8. TRAMADOL [Concomitant]
     Dosage: UNK
  9. OXYCODONE [Concomitant]
     Dosage: UNK
  10. OMEPRAZOLE [Concomitant]
     Dosage: UNK
  11. WARFARIN [Concomitant]
     Dosage: UNK
  12. MIACALCIN [Concomitant]
     Dosage: UNK
  13. CYCLOSPORINE [Concomitant]
     Dosage: UNK
  14. ACICLOVIR [Concomitant]
     Dosage: UNK
  15. VELCADE [Concomitant]
     Indication: MULTIPLE MYELOMA
     Dosage: UNK

REACTIONS (3)
  - AUTOLOGOUS BONE MARROW TRANSPLANTATION THERAPY [None]
  - EXERCISE TOLERANCE DECREASED [None]
  - MEDICATION ERROR [None]
